FAERS Safety Report 19421347 (Version 1)
Quarter: 2021Q2

REPORT INFORMATION
  Report Type: Spontaneous
  Country: DE (occurrence: DE)
  Receive Date: 20210615
  Receipt Date: 20210615
  Transmission Date: 20210717
  Serious: Yes (Other)
  Sender: FDA-Public Use
  Company Number: DE-009507513-2106DEU003214

PATIENT
  Age: 57 Year
  Sex: Male

DRUGS (9)
  1. CISPLATIN. [Suspect]
     Active Substance: CISPLATIN
     Indication: LUNG NEOPLASM MALIGNANT
     Dosage: UNK
  2. CISPLATIN. [Suspect]
     Active Substance: CISPLATIN
     Dosage: UNK
  3. PEMETREXED. [Suspect]
     Active Substance: PEMETREXED
     Dosage: UNK
  4. PEMETREXED. [Suspect]
     Active Substance: PEMETREXED
     Indication: LUNG NEOPLASM MALIGNANT
     Dosage: UNK
  5. PEMBROLIZUMAB. [Suspect]
     Active Substance: PEMBROLIZUMAB
     Dosage: UNK
  6. PEMBROLIZUMAB. [Suspect]
     Active Substance: PEMBROLIZUMAB
     Indication: LUNG NEOPLASM MALIGNANT
     Dosage: UNK
  7. PEMBROLIZUMAB. [Suspect]
     Active Substance: PEMBROLIZUMAB
     Dosage: UNK
  8. CISPLATIN. [Suspect]
     Active Substance: CISPLATIN
     Dosage: UNK
  9. PEMETREXED. [Suspect]
     Active Substance: PEMETREXED
     Dosage: UNK

REACTIONS (10)
  - Pleural decortication [Unknown]
  - Colostomy [Unknown]
  - Lung lobectomy [Unknown]
  - Rheumatoid arthritis [Unknown]
  - Adrenalectomy [Unknown]
  - Pancreatectomy [Unknown]
  - Splenectomy [Unknown]
  - Thoracotomy [Unknown]
  - Colectomy [Unknown]
  - Lymphadenectomy [Unknown]
